FAERS Safety Report 16919701 (Version 2)
Quarter: 2019Q4

REPORT INFORMATION
  Report Type: Report from Study
  Country: US (occurrence: US)
  Receive Date: 20191015
  Receipt Date: 20191231
  Transmission Date: 20200122
  Serious: Yes (Hospitalization)
  Sender: FDA-Public Use
  Company Number: US-ACTELION-A-US2018-176374

PATIENT
  Age: 33 Year
  Sex: Female
  Weight: 76.64 kg

DRUGS (13)
  1. VELETRI [Suspect]
     Active Substance: EPOPROSTENOL
     Dosage: 10.5 NG/KG, PER MIN
     Route: 042
  2. ELIQUIS [Concomitant]
     Active Substance: APIXABAN
  3. VELETRI [Suspect]
     Active Substance: EPOPROSTENOL
     Dosage: 11.5 NG/KG, PER MIN
     Route: 042
  4. VELETRI [Suspect]
     Active Substance: EPOPROSTENOL
     Dosage: 20 NG/KG, PER MIN
     Route: 042
  5. VELETRI [Suspect]
     Active Substance: EPOPROSTENOL
     Dosage: 11 NG/KG, PER MIN
     Route: 042
  6. VELETRI [Suspect]
     Active Substance: EPOPROSTENOL
     Dosage: 6 NG/KG, PER MIN
     Route: 042
  7. SILDENAFIL CITRATE. [Concomitant]
     Active Substance: SILDENAFIL CITRATE
  8. VELETRI [Suspect]
     Active Substance: EPOPROSTENOL
     Indication: PULMONARY ARTERIAL HYPERTENSION
     Dosage: 40 NG/KG, PER MIN
     Route: 042
  9. VELETRI [Suspect]
     Active Substance: EPOPROSTENOL
     Dosage: 23.5 NG/KG, PER MIN
     Route: 042
  10. OPSUMIT [Suspect]
     Active Substance: MACITENTAN
     Indication: PULMONARY ARTERIAL HYPERTENSION
     Dosage: UNK
     Route: 048
     Dates: start: 20180628
  11. ADEMPAS [Suspect]
     Active Substance: RIOCIGUAT
     Indication: PRODUCT USED FOR UNKNOWN INDICATION
     Dosage: 1.5 MG, TID
     Route: 065
  12. VELETRI [Suspect]
     Active Substance: EPOPROSTENOL
     Dosage: 9 NG/KG, PER MIN
     Route: 042
  13. WARFARIN [Concomitant]
     Active Substance: WARFARIN

REACTIONS (27)
  - Pneumonia [Unknown]
  - Pain in extremity [Unknown]
  - Catheter site rash [Recovered/Resolved]
  - Catheter site erythema [Unknown]
  - Rash pruritic [Unknown]
  - Nausea [Unknown]
  - Abdominal pain upper [Unknown]
  - Decreased appetite [Unknown]
  - Vomiting [Unknown]
  - Device leakage [Unknown]
  - Scleral discolouration [Unknown]
  - Blood bilirubin increased [Recovering/Resolving]
  - Wheezing [Unknown]
  - Constipation [Unknown]
  - Palpitations [Unknown]
  - Pulmonary hypertension [Unknown]
  - Catheter site irritation [Unknown]
  - Suture insertion [Unknown]
  - Suture related complication [Unknown]
  - Skin burning sensation [Unknown]
  - Flushing [Unknown]
  - Catheter site pruritus [Unknown]
  - Right ventricular failure [Unknown]
  - Headache [Recovered/Resolved]
  - Diarrhoea [Unknown]
  - Oedema peripheral [Unknown]
  - Impatience [Unknown]

NARRATIVE: CASE EVENT DATE: 20180628
